FAERS Safety Report 9391417 (Version 1)
Quarter: 2013Q3

REPORT INFORMATION
  Report Type: Spontaneous
  Country: US (occurrence: US)
  Receive Date: 20130709
  Receipt Date: 20130709
  Transmission Date: 20140515
  Serious: Yes (Hospitalization)
  Sender: FDA-Public Use
  Company Number: US-CELGENEUS-163-21880-13060186

PATIENT
  Age: 77 Year
  Sex: Female

DRUGS (2)
  1. REVLIMID [Suspect]
     Indication: PLASMA CELL MYELOMA
     Dosage: 15 MILLIGRAM
     Route: 048
     Dates: start: 201008
  2. REVLIMID [Suspect]
     Route: 048
     Dates: start: 201304

REACTIONS (6)
  - Blood count abnormal [Unknown]
  - Pain of skin [Unknown]
  - Abdominal pain upper [Unknown]
  - Chest pain [Unknown]
  - Toothache [Unknown]
  - Tremor [Unknown]
